FAERS Safety Report 16551760 (Version 1)
Quarter: 2019Q3

REPORT INFORMATION
  Report Type: Spontaneous
  Country: JP (occurrence: JP)
  Receive Date: 20190710
  Receipt Date: 20190710
  Transmission Date: 20191004
  Serious: Yes (Hospitalization, Other)
  Sender: FDA-Public Use
  Company Number: JP-PFIZER INC-2019284230

PATIENT
  Age: 83 Year
  Sex: Female

DRUGS (2)
  1. LYRICA [Suspect]
     Active Substance: PREGABALIN
     Dosage: 75 MG, UNK
  2. LYRICA [Suspect]
     Active Substance: PREGABALIN
     Dosage: 150 MG, UNK

REACTIONS (6)
  - Dyspnoea [Unknown]
  - Pain [Unknown]
  - Oedema peripheral [Unknown]
  - Gastrointestinal oedema [Unknown]
  - Face oedema [Unknown]
  - Pulmonary oedema [Unknown]
